FAERS Safety Report 23885607 (Version 1)
Quarter: 2024Q2

REPORT INFORMATION
  Report Type: Other
  Country: JP (occurrence: JP)
  Receive Date: 20240522
  Receipt Date: 20240522
  Transmission Date: 20240716
  Serious: Yes (Life-Threatening, Hospitalization)
  Sender: FDA-Public Use
  Company Number: JP-B.Braun Medical Inc.-2157311

PATIENT
  Age: 40 Year
  Sex: Female

DRUGS (9)
  1. MEROPENEM [Suspect]
     Active Substance: MEROPENEM
     Indication: Septic shock
  2. VANCOMYCIN [Suspect]
     Active Substance: VANCOMYCIN
  3. GARENOXACIN [Concomitant]
     Active Substance: GARENOXACIN
  4. DOBUTAMINE [Suspect]
     Active Substance: DOBUTAMINE HYDROCHLORIDE
  5. HYDROCORTISONE [Suspect]
     Active Substance: HYDROCORTISONE
  6. VASOPRESSIN [Suspect]
     Active Substance: VASOPRESSIN
  7. NOREPINEPHRINE [Suspect]
     Active Substance: NOREPINEPHRINE\NOREPINEPHRINE BITARTRATE
  8. DOPAMINE [Suspect]
     Active Substance: DOPAMINE HYDROCHLORIDE
  9. CLINDAMYCIN [Suspect]
     Active Substance: CLINDAMYCIN

REACTIONS (1)
  - Drug ineffective [Unknown]
